FAERS Safety Report 9718687 (Version 1)
Quarter: 2013Q4

REPORT INFORMATION
  Report Type: Not Available
  Country: US (occurrence: US)
  Receive Date: 20131125
  Receipt Date: 20131125
  Transmission Date: 20140711
  Serious: No
  Sender: FDA-Public Use
  Company Number: US-H. LUNDBECK A/S-DKLU1091826

PATIENT
  Sex: Male

DRUGS (2)
  1. ONFI [Suspect]
     Indication: EPILEPSY
     Dosage: 2 TABLETS
     Route: 048
     Dates: start: 20130507
  2. TOPAMAX [Concomitant]
     Indication: PRODUCT USED FOR UNKNOWN INDICATION

REACTIONS (2)
  - Somnolence [Unknown]
  - Fatigue [Unknown]
